FAERS Safety Report 15602979 (Version 1)
Quarter: 2018Q4

REPORT INFORMATION
  Report Type: Spontaneous
  Country: US (occurrence: US)
  Receive Date: 20181109
  Receipt Date: 20181109
  Transmission Date: 20190205
  Serious: No
  Sender: FDA-Public Use
  Company Number: US-AMGEN-USASP2018154881

PATIENT

DRUGS (1)
  1. REPATHA [Suspect]
     Active Substance: EVOLOCUMAB
     Indication: LOW DENSITY LIPOPROTEIN INCREASED
     Dosage: UNK, QMO
     Route: 065

REACTIONS (3)
  - Feeling abnormal [Unknown]
  - Nervousness [Unknown]
  - Pain [Unknown]

NARRATIVE: CASE EVENT DATE: 20181023
